FAERS Safety Report 4385310-9 (Version None)
Quarter: 2004Q2

REPORT INFORMATION
  Report Type: 
  Country: None (occurrence: None)
  Receive Date: 20040622
  Receipt Date: 20040609
  Transmission Date: 20050107
  Serious: Yes (Other)
  Sender: FDA-Public Use
  Company Number: US-JNJFOC-20040602952

PATIENT
  Age: 61 Year
  Sex: Male

DRUGS (1)
  1. REMICADE [Suspect]
     Indication: CROHN'S DISEASE
     Dosage: 18-24 MONTHS LAST INFUSION LESS THAN 8 WEEKS AGO
     Route: 042

REACTIONS (1)
  - LUNG NEOPLASM MALIGNANT [None]
